FAERS Safety Report 12617298 (Version 3)
Quarter: 2016Q3

REPORT INFORMATION
  Report Type: Spontaneous
  Country: US (occurrence: US)
  Receive Date: 20160803
  Receipt Date: 20160808
  Transmission Date: 20161109
  Serious: No
  Sender: FDA-Public Use
  Company Number: US-BEH-2016058224

PATIENT
  Sex: Male
  Weight: 101 kg

DRUGS (25)
  1. ACETAMINOPHEN. [Concomitant]
     Active Substance: ACETAMINOPHEN
  2. DULERA [Concomitant]
     Active Substance: FORMOTEROL FUMARATE DIHYDRATE\MOMETASONE FUROATE
  3. ZANTAC [Concomitant]
     Active Substance: RANITIDINE HYDROCHLORIDE
  4. MELOXICAM. [Concomitant]
     Active Substance: MELOXICAM
  5. IBUPROFEN. [Concomitant]
     Active Substance: IBUPROFEN
  6. SOMA [Concomitant]
     Active Substance: CARISOPRODOL
  7. ANDROGEL [Concomitant]
     Active Substance: TESTOSTERONE
  8. CARISOPRODOL. [Concomitant]
     Active Substance: CARISOPRODOL
  9. OXYCODONE [Concomitant]
     Active Substance: OXYCODONE
  10. HIZENTRA [Suspect]
     Active Substance: HUMAN IMMUNOGLOBULIN G
     Indication: IMMUNODEFICIENCY COMMON VARIABLE
     Route: 058
  11. HIZENTRA [Suspect]
     Active Substance: HUMAN IMMUNOGLOBULIN G
     Dates: start: 20101209
  12. NASONEX [Concomitant]
     Active Substance: MOMETASONE FUROATE
  13. ACIPHEX [Concomitant]
     Active Substance: RABEPRAZOLE SODIUM
  14. DIPHENHYDRAMINE. [Concomitant]
     Active Substance: DIPHENHYDRAMINE
  15. LIDOCAINE/PRILOCAINE [Concomitant]
     Active Substance: LIDOCAINE\PRILOCAINE
  16. EPIPEN [Concomitant]
     Active Substance: EPINEPHRINE
  17. LMX [Concomitant]
     Active Substance: LIDOCAINE
  18. BUTALB [Concomitant]
  19. HIZENTRA [Suspect]
     Active Substance: HUMAN IMMUNOGLOBULIN G
     Route: 058
  20. HIZENTRA [Suspect]
     Active Substance: HUMAN IMMUNOGLOBULIN G
     Route: 058
  21. OXYCODONE [Concomitant]
     Active Substance: OXYCODONE
  22. SURGICAL AIDS [Concomitant]
  23. NEURONTIN [Concomitant]
     Active Substance: GABAPENTIN
  24. ALLEGRA [Concomitant]
     Active Substance: FEXOFENADINE HYDROCHLORIDE
  25. PHENERGAN [Concomitant]
     Active Substance: PROMETHAZINE HYDROCHLORIDE

REACTIONS (1)
  - Sinusitis [Unknown]
